FAERS Safety Report 20577161 (Version 1)
Quarter: 2022Q1

REPORT INFORMATION
  Report Type: Spontaneous
  Country: US (occurrence: None)
  Receive Date: 20220310
  Receipt Date: 20220310
  Transmission Date: 20220423
  Serious: Yes (Death, Other)
  Sender: FDA-Public Use
  Company Number: US-ADIENNEP-2022AD000169

PATIENT
  Age: 63 Year
  Sex: Female

DRUGS (2)
  1. THIOTEPA [Suspect]
     Active Substance: THIOTEPA
     Indication: Autologous haematopoietic stem cell transplant
  2. BICNU [Suspect]
     Active Substance: CARMUSTINE
     Indication: Autologous haematopoietic stem cell transplant

REACTIONS (8)
  - Thrombocytopenia [Recovered/Resolved]
  - Hypopituitarism [Recovered/Resolved]
  - Cardiac arrest [Unknown]
  - Organising pneumonia [Unknown]
  - Thrombotic microangiopathy [Unknown]
  - Septic shock [Fatal]
  - Hepatic failure [Fatal]
  - Disseminated intravascular coagulation [Fatal]
